FAERS Safety Report 7366031-7 (Version None)
Quarter: 2011Q1

REPORT INFORMATION
  Report Type: 
  Country: None (occurrence: None)
  Receive Date: 20110322
  Receipt Date: 20110309
  Transmission Date: 20110831
  Serious: Yes (Other)
  Sender: FDA-Public Use
  Company Number: CH-B.I. PHARMACEUTICALS,INC./RIDGEFIELD-2011-AP-00148SI

PATIENT
  Age: 9 Year
  Sex: Male

DRUGS (22)
  1. CATAPRESAN [Suspect]
     Route: 042
     Dates: start: 20110222, end: 20110223
  2. FLOXAPEN [Suspect]
     Dosage: 3000 MG
     Route: 042
     Dates: start: 20110218
  3. MORPHINE [Suspect]
     Route: 042
     Dates: start: 20110213, end: 20110222
  4. PROPOFOL [Suspect]
     Route: 042
     Dates: start: 20110222, end: 20110223
  5. MERONEM [Concomitant]
     Dosage: 20 RT
     Dates: start: 20110222
  6. VANCOMYCIN [Concomitant]
     Dosage: 800 MG
     Dates: start: 20110218
  7. PROPOFOL [Suspect]
     Route: 042
     Dates: start: 20110213, end: 20110216
  8. LASIX [Concomitant]
     Dates: start: 20110222, end: 20110222
  9. ANEXATE [Concomitant]
     Dosage: 0.15 MG
     Dates: start: 20110221, end: 20110221
  10. CLINDAMYCIN HCL [Concomitant]
     Dosage: 10 RT
     Dates: start: 20110213, end: 20110218
  11. ACYCLOVIR [Concomitant]
     Dosage: 20 RT
     Dates: start: 20110221, end: 20110222
  12. LASIX [Concomitant]
     Dosage: 50 MG
     Dates: start: 20110219, end: 20110219
  13. CEPROTIN [Concomitant]
     Dates: start: 20110214, end: 20110216
  14. ROCEPHIN [Suspect]
     Dosage: 100 RT
     Route: 051
     Dates: start: 20110213, end: 20110218
  15. CATAPRESAN [Suspect]
     Route: 042
     Dates: start: 20110218, end: 20110219
  16. LEXOTANIL [Suspect]
     Route: 042
     Dates: start: 20110223
  17. FENTANYL [Concomitant]
     Dates: start: 20110213, end: 20110217
  18. NORADRENALIN [Concomitant]
     Dates: start: 20110213, end: 20110216
  19. KETALAR [Concomitant]
     Dates: start: 20110216, end: 20110217
  20. DOBUTAMIN [Concomitant]
     Dates: start: 20110213, end: 20110216
  21. NEXIUM [Concomitant]
  22. DORMICUM [Concomitant]
     Dates: start: 20110213, end: 20110217

REACTIONS (1)
  - COMA [None]
